FAERS Safety Report 6631612-2 (Version None)
Quarter: 2010Q1

REPORT INFORMATION
  Report Type: 
  Country: None (occurrence: None)
  Receive Date: 20100312
  Receipt Date: 20100302
  Transmission Date: 20100710
  Serious: Yes (Other)
  Sender: FDA-Public Use
  Company Number: DE-PFIZER INC-2010026703

PATIENT
  Age: 68 Year
  Sex: Female

DRUGS (3)
  1. ZELDOX [Suspect]
     Dosage: 100 MG PER DAY
     Route: 048
  2. ANAFRANIL [Suspect]
     Dosage: UNK
  3. CLOZAPINE [Suspect]

REACTIONS (1)
  - DEVICE FAILURE [None]
